FAERS Safety Report 6375120-5 (Version None)
Quarter: 2009Q3

REPORT INFORMATION
  Report Type: 
  Country: None (occurrence: None)
  Receive Date: 20090924
  Receipt Date: 20090918
  Transmission Date: 20100115
  Serious: Yes (Other)
  Sender: FDA-Public Use
  Company Number: GB-ROCHE-657938

PATIENT

DRUGS (1)
  1. CLONAZEPAM [Suspect]
     Indication: DRUG USE FOR UNKNOWN INDICATION
     Dosage: CLONAZEPAM (BRAND UNKNOWN).
     Route: 065

REACTIONS (1)
  - INTESTINAL OBSTRUCTION [None]
